FAERS Safety Report 11599947 (Version 1)
Quarter: 2015Q4

REPORT INFORMATION
  Report Type: Spontaneous
  Country: US (occurrence: US)
  Receive Date: 20151006
  Receipt Date: 20151006
  Transmission Date: 20160304
  Serious: No
  Sender: FDA-Public Use
  Company Number: US-AMGEN-USASP2015029686

PATIENT
  Age: 81 Year
  Sex: Female

DRUGS (2)
  1. PROLIA [Suspect]
     Active Substance: DENOSUMAB
     Indication: PRODUCT USED FOR UNKNOWN INDICATION
     Dosage: UNK
     Route: 065
  2. FOSAMAX [Concomitant]
     Active Substance: ALENDRONATE SODIUM

REACTIONS (7)
  - Skin discolouration [Recovered/Resolved]
  - Pain in extremity [Unknown]
  - Scratch [Unknown]
  - Rash macular [Unknown]
  - Blood pressure increased [Unknown]
  - Drug ineffective [Unknown]
  - Pruritus generalised [Unknown]
